FAERS Safety Report 7715397-4 (Version None)
Quarter: 2011Q3

REPORT INFORMATION
  Report Type: 
  Country: None (occurrence: None)
  Receive Date: 20110829
  Receipt Date: 20110817
  Transmission Date: 20111222
  Serious: Yes (Other)
  Sender: FDA-Public Use
  Company Number: JP-SANOFI-AVENTIS-2011SA053266

PATIENT
  Age: 72 Year
  Sex: Male

DRUGS (3)
  1. THERAPEUTIC RADIOPHARMACEUTICALS [Suspect]
     Dosage: 46 G DOSE OF RADIOTHERAPY WAS ADMINISTERED. DOSE:46 NOT APPLICABLE
     Route: 065
  2. CISPLATIN [Suspect]
     Route: 065
  3. DOCETAXEL [Suspect]
     Route: 065

REACTIONS (1)
  - STRESS CARDIOMYOPATHY [None]
